FAERS Safety Report 10055570 (Version 2)
Quarter: 2014Q2

REPORT INFORMATION
  Report Type: Spontaneous
  Country: US (occurrence: US)
  Receive Date: 20140403
  Receipt Date: 20140407
  Transmission Date: 20141212
  Serious: Yes (Other)
  Sender: FDA-Public Use
  Company Number: US-DRREDDYS-USA/USA/14/0039366

PATIENT
  Age: 77 Year
  Sex: Male
  Weight: 133.8 kg

DRUGS (10)
  1. LEVOFLOXACIN TABLETS 500 MG [Suspect]
     Indication: NASOPHARYNGITIS
     Route: 048
     Dates: start: 20140312, end: 20140322
  2. LEVOFLOXACIN TABLETS 500 MG [Suspect]
     Indication: NAUSEA
  3. METOPROLOL SUCCINATE [Concomitant]
     Indication: PRODUCT USED FOR UNKNOWN INDICATION
     Route: 065
  4. LANTUS [Concomitant]
     Indication: PRODUCT USED FOR UNKNOWN INDICATION
     Route: 065
  5. HUMALOG [Concomitant]
     Indication: PRODUCT USED FOR UNKNOWN INDICATION
     Dosage: UP TO 15-20 UNITS
     Route: 065
  6. LISINOPRIL [Concomitant]
     Indication: PRODUCT USED FOR UNKNOWN INDICATION
     Route: 065
  7. CILOSTAZOL [Concomitant]
     Indication: PRODUCT USED FOR UNKNOWN INDICATION
     Route: 065
  8. BENICAR [Concomitant]
     Indication: PRODUCT USED FOR UNKNOWN INDICATION
     Route: 065
  9. K-TAB [Concomitant]
     Indication: PRODUCT USED FOR UNKNOWN INDICATION
     Route: 065
  10. TORSEMIDE [Concomitant]
     Indication: PRODUCT USED FOR UNKNOWN INDICATION
     Route: 065

REACTIONS (6)
  - Urinary tract infection [Recovering/Resolving]
  - Chromaturia [Recovering/Resolving]
  - Micturition disorder [Recovering/Resolving]
  - Pruritus genital [Recovering/Resolving]
  - Genital burning sensation [Recovering/Resolving]
  - Increased insulin requirement [Recovered/Resolved]
